FAERS Safety Report 8585141-X (Version None)
Quarter: 2012Q3

REPORT INFORMATION
  Report Type: 
  Country: None (occurrence: None)
  Receive Date: 20120810
  Receipt Date: 20120806
  Transmission Date: 20120928
  Serious: Yes (Other)
  Sender: FDA-Public Use
  Company Number: PHHY2012CA068462

PATIENT
  Age: 58 Year
  Sex: Female

DRUGS (1)
  1. ESTRADERM [Suspect]
     Route: 062

REACTIONS (3)
  - PHOTOPSIA [None]
  - FALL [None]
  - VITREOUS DETACHMENT [None]
